FAERS Safety Report 7477586-6 (Version None)
Quarter: 2011Q2

REPORT INFORMATION
  Report Type: 
  Country: None (occurrence: None)
  Receive Date: 20110505
  Receipt Date: 20110421
  Transmission Date: 20111010
  Serious: Yes (Hospitalization)
  Sender: FDA-Public Use
  Company Number: DSU-2011-02899

PATIENT
  Age: 71 Year
  Sex: Male
  Weight: 107.0489 kg

DRUGS (5)
  1. EXFORGE [Concomitant]
  2. LISINOPRIL [Concomitant]
  3. TRIBENZOR [Suspect]
     Indication: HYPERTENSION
     Dosage: SEE IMAGE
     Route: 048
     Dates: start: 20110101, end: 20110101
  4. TRIBENZOR [Suspect]
     Indication: HYPERTENSION
     Dosage: SEE IMAGE
     Route: 048
     Dates: start: 20110101, end: 20110418
  5. TRIBENZOR [Suspect]
     Indication: HYPERTENSION
     Dosage: SEE IMAGE
     Route: 048
     Dates: start: 20110101, end: 20110101

REACTIONS (4)
  - MUSCLE SPASMS [None]
  - CORONARY ARTERY OCCLUSION [None]
  - TREATMENT NONCOMPLIANCE [None]
  - BLOOD PRESSURE INADEQUATELY CONTROLLED [None]
